FAERS Safety Report 10193881 (Version 1)
Quarter: 2014Q2

REPORT INFORMATION
  Report Type: Spontaneous
  Country: US (occurrence: US)
  Receive Date: 20140524
  Receipt Date: 20140524
  Transmission Date: 20141212
  Serious: No
  Sender: FDA-Public Use
  Company Number: US-SANOFI-AVENTIS-2013SA049731

PATIENT
  Sex: Female

DRUGS (2)
  1. LANTUS [Suspect]
     Indication: DIABETES MELLITUS
     Dosage: STARTED DECREASING LANTUS AND NOW AT 30 UNITS MORNING AND NIGHT
     Route: 058
  2. LANTUS [Suspect]
     Indication: DIABETES MELLITUS
     Dosage: DOSE:100 UNIT(S)
     Route: 058

REACTIONS (2)
  - Arthralgia [Recovered/Resolved]
  - Drug administration error [Unknown]
